FAERS Safety Report 20819189 (Version 13)
Quarter: 2023Q1

REPORT INFORMATION
  Report Type: Report from Study
  Country: US (occurrence: None)
  Receive Date: 20220512
  Receipt Date: 20230322
  Transmission Date: 20230417
  Serious: Yes (Hospitalization)
  Sender: FDA-Public Use
  Company Number: US-Eisai Medical Research-EC-2022-114624

PATIENT
  Age: 58 Year
  Sex: Male
  Weight: 124.3 kg

DRUGS (29)
  1. LENVATINIB [Suspect]
     Active Substance: LENVATINIB
     Indication: Clear cell renal cell carcinoma
     Route: 048
     Dates: start: 20220112, end: 20220501
  2. LENVATINIB [Suspect]
     Active Substance: LENVATINIB
     Route: 048
     Dates: start: 20220512, end: 20220607
  3. LENVATINIB [Suspect]
     Active Substance: LENVATINIB
     Route: 048
     Dates: start: 20220611, end: 20220623
  4. LENVATINIB [Suspect]
     Active Substance: LENVATINIB
     Route: 048
     Dates: start: 20220627, end: 20220707
  5. LENVATINIB [Suspect]
     Active Substance: LENVATINIB
     Route: 048
     Dates: start: 20220710, end: 20220728
  6. LENVATINIB [Suspect]
     Active Substance: LENVATINIB
     Route: 048
     Dates: start: 20220801, end: 20220811
  7. LENVATINIB [Suspect]
     Active Substance: LENVATINIB
     Route: 048
     Dates: start: 20220815, end: 20220915
  8. LENVATINIB [Suspect]
     Active Substance: LENVATINIB
     Route: 048
     Dates: start: 20220919, end: 20221010
  9. LENVATINIB [Suspect]
     Active Substance: LENVATINIB
     Route: 048
     Dates: start: 20221012, end: 20221109
  10. LENVATINIB [Suspect]
     Active Substance: LENVATINIB
     Route: 048
     Dates: start: 20221113, end: 20221120
  11. LENVATINIB [Suspect]
     Active Substance: LENVATINIB
     Route: 048
     Dates: start: 20221126, end: 20221213
  12. PEMBROLIZUMAB [Suspect]
     Active Substance: PEMBROLIZUMAB
     Indication: Clear cell renal cell carcinoma
     Route: 041
     Dates: start: 20220112, end: 20220406
  13. PEMBROLIZUMAB [Suspect]
     Active Substance: PEMBROLIZUMAB
     Route: 041
     Dates: start: 20220518
  14. COLCHICINE [Concomitant]
     Active Substance: COLCHICINE
     Dates: start: 20161128, end: 20220525
  15. LIPITOR [Concomitant]
     Active Substance: ATORVASTATIN CALCIUM
     Dates: start: 20161213
  16. ASPIRIN [Concomitant]
     Active Substance: ASPIRIN
     Dates: start: 20170124
  17. TRILIPIX [Concomitant]
     Active Substance: FENOFIBRIC ACID
     Dates: start: 20170124
  18. FOLIC ACID [Concomitant]
     Active Substance: FOLIC ACID
     Dates: start: 20200318
  19. CHOLECALCIFEROL [Concomitant]
     Active Substance: CHOLECALCIFEROL
     Dates: start: 20200318, end: 20220508
  20. JANUVIA [Concomitant]
     Active Substance: SITAGLIPTIN PHOSPHATE
     Dates: start: 20200812
  21. AMARYL [Concomitant]
     Active Substance: GLIMEPIRIDE
     Dates: start: 20210616
  22. MELATONIN [Concomitant]
     Active Substance: MELATONIN
     Dates: start: 20210726
  23. GLY-OXIDE [Concomitant]
     Active Substance: CARBAMIDE PEROXIDE
     Dosage: RINSE
     Dates: start: 20220225
  24. ALUMINIUM HYDROXIDE;DIPHENHYDRAMINE HYDROCHLORIDE;LIDOCAINE HYDROCHLOR [Concomitant]
     Dates: start: 20220128
  25. LOPRESSOR [Concomitant]
     Active Substance: METOPROLOL TARTRATE
     Dates: start: 20220222, end: 20220501
  26. TOLNAFTATE [Concomitant]
     Active Substance: TOLNAFTATE
     Dates: start: 20220428, end: 20220508
  27. BENZONATATE [Concomitant]
     Active Substance: BENZONATATE
     Dates: start: 20220427, end: 20221123
  28. INDOMETHACIN [Concomitant]
     Active Substance: INDOMETHACIN
     Dates: start: 20220119
  29. OLMESARTAN MEDOXOMIL [Concomitant]
     Active Substance: OLMESARTAN MEDOXOMIL
     Dates: start: 20220407, end: 20220501

REACTIONS (1)
  - Acute kidney injury [Recovered/Resolved]

NARRATIVE: CASE EVENT DATE: 20220501
